FAERS Safety Report 6026544-7 (Version None)
Quarter: 2009Q1

REPORT INFORMATION
  Report Type: 
  Country: None (occurrence: None)
  Receive Date: 20090102
  Receipt Date: 20081222
  Transmission Date: 20090719
  Serious: Yes (Hospitalization)
  Sender: FDA-Public Use
  Company Number: US-PFIZER INC-2008096248

PATIENT

DRUGS (4)
  1. AXITINIB [Suspect]
     Indication: COLORECTAL CANCER
     Dosage: TWICE DAILY CONTINUOS
     Route: 048
     Dates: start: 20080701, end: 20080827
  2. CAMPTOSAR [Suspect]
     Indication: COLORECTAL CANCER
     Dosage: 340 MG, EVERY 2 WKS
     Route: 042
     Dates: start: 20080709, end: 20080903
  3. FLUOROURACIL [Suspect]
     Indication: COLORECTAL CANCER
     Dosage: 5250 MG, EVERY 2 WKS
     Route: 042
     Dates: start: 20080813, end: 20080903
  4. CALCIUM FOLINATE [Suspect]
     Indication: COLORECTAL CANCER
     Dosage: 750 MG, EVERY 2 WKS
     Route: 042
     Dates: start: 20080709, end: 20080903

REACTIONS (1)
  - HYPOVOLAEMIA [None]
